FAERS Safety Report 24550970 (Version 1)
Quarter: 2024Q4

REPORT INFORMATION
  Report Type: Spontaneous
  Country: US (occurrence: US)
  Receive Date: 20241025
  Receipt Date: 20241025
  Transmission Date: 20250114
  Serious: Yes (Life-Threatening)
  Sender: LOREAL
  Company Number: US-L^OREAL USA PRODUCTS, INC.-2024LOR00043

PATIENT

DRUGS (1)
  1. LA ROCHE POSAY EFFACLAR DERMATOLOGICAL ACNE SYSTEM 3 STEP ACNE ROUTINE [Suspect]
     Active Substance: BENZOYL PEROXIDE\SALICYLIC ACID
     Dosage: UNK
     Dates: start: 2024

REACTIONS (3)
  - Urticaria [Unknown]
  - Skin erosion [Unknown]
  - Swelling [Unknown]

NARRATIVE: CASE EVENT DATE: 20240101
